FAERS Safety Report 8256096-2 (Version None)
Quarter: 2012Q2

REPORT INFORMATION
  Report Type: 
  Country: None (occurrence: None)
  Receive Date: 20120403
  Receipt Date: 20120328
  Transmission Date: 20120825
  Serious: Yes (Other)
  Sender: FDA-Public Use
  Company Number: US-PFIZER INC-2012080611

PATIENT
  Sex: Female

DRUGS (3)
  1. LOSARTAN POTASSIUM [Suspect]
     Dosage: UNK
  2. VIAGRA [Suspect]
     Dosage: 50 MG, UNK
  3. COREG [Suspect]

REACTIONS (2)
  - ATRIAL FIBRILLATION [None]
  - OEDEMA PERIPHERAL [None]
